FAERS Safety Report 5486635-6 (Version None)
Quarter: 2007Q4

REPORT INFORMATION
  Report Type: 
  Country: None (occurrence: None)
  Receive Date: 20071016
  Receipt Date: 20071011
  Transmission Date: 20080405
  Serious: Yes (Death, Other)
  Sender: FDA-Public Use
  Company Number: JP-AVENTIS-200712626JP

PATIENT

DRUGS (1)
  1. TAXOTERE [Suspect]

REACTIONS (2)
  - LUNG NEOPLASM MALIGNANT [None]
  - PANCREATITIS [None]
